FAERS Safety Report 6619896-8 (Version None)
Quarter: 2010Q1

REPORT INFORMATION
  Report Type: 
  Country: None (occurrence: None)
  Receive Date: 20100309
  Receipt Date: 20100302
  Transmission Date: 20100710
  Serious: Yes (Hospitalization)
  Sender: FDA-Public Use
  Company Number: IT-JNJFOC-20100200741

PATIENT
  Sex: Male

DRUGS (3)
  1. LEUSTATIN [Suspect]
     Indication: HAIRY CELL LEUKAEMIA
     Route: 042
  2. LEUSTATIN [Suspect]
     Route: 042
  3. VOLTAREN [Suspect]
     Indication: HYPERPYREXIA
     Route: 030

REACTIONS (5)
  - ANURIA [None]
  - BLOOD ALKALINE PHOSPHATASE INCREASED [None]
  - GAMMA-GLUTAMYLTRANSFERASE INCREASED [None]
  - HYPERTRANSAMINASAEMIA [None]
  - WEIGHT INCREASED [None]
